FAERS Safety Report 14768367 (Version 2)
Quarter: 2018Q2

REPORT INFORMATION
  Report Type: Spontaneous
  Country: US (occurrence: US)
  Receive Date: 20180417
  Receipt Date: 20180424
  Transmission Date: 20180711
  Serious: Yes (Other)
  Sender: FDA-Public Use
  Company Number: US-AKORN PHARMACEUTICALS-2018AKN00455

PATIENT
  Age: 18 Year
  Sex: Female
  Weight: 45.71 kg

DRUGS (4)
  1. MYORISAN [Suspect]
     Active Substance: ISOTRETINOIN
     Indication: PIGMENTATION DISORDER
     Dosage: 40 MG, 1X/DAY
     Route: 048
     Dates: start: 20171128, end: 20180219
  2. MYORISAN [Suspect]
     Active Substance: ISOTRETINOIN
     Indication: ACNE
     Dosage: UNK
     Dates: start: 20121024, end: 2014
  3. TRIAMCINOLONE [Concomitant]
     Active Substance: TRIAMCINOLONE
  4. UNSPECIFIED ORAL CONTRACEPTIVE [Concomitant]

REACTIONS (5)
  - Atypical pneumonia [Recovered/Resolved]
  - Leukopenia [Unknown]
  - Bipolar disorder [Unknown]
  - Depression [Recovered/Resolved]
  - Off label use [Recovered/Resolved]

NARRATIVE: CASE EVENT DATE: 2012
